FAERS Safety Report 7862134-9 (Version None)
Quarter: 2011Q4

REPORT INFORMATION
  Report Type: 
  Country: None (occurrence: None)
  Receive Date: 20111027
  Receipt Date: 20101102
  Transmission Date: 20120403
  Serious: No
  Sender: FDA-Public Use
  Company Number: US-AMGEN-TCS430910

PATIENT
  Sex: Female
  Weight: 94 kg

DRUGS (1)
  1. ENBREL [Suspect]
     Indication: RHEUMATOID ARTHRITIS
     Dosage: 50 MG, QWK
     Route: 058
     Dates: start: 20100101

REACTIONS (3)
  - DRUG INEFFECTIVE [None]
  - HYPERAESTHESIA [None]
  - RHEUMATOID ARTHRITIS [None]
